FAERS Safety Report 9437578 (Version 1)
Quarter: 2013Q3

REPORT INFORMATION
  Report Type: Other
  Country: BR (occurrence: BR)
  Receive Date: 20130802
  Receipt Date: 20130802
  Transmission Date: 20140515
  Serious: Yes (Hospitalization, Other)
  Sender: FDA-Public Use
  Company Number: BR-SHIRE-ALL1-2013-05172

PATIENT
  Age: 11 Year
  Sex: Male

DRUGS (1)
  1. ELAPRASE [Suspect]
     Indication: MUCOPOLYSACCHARIDOSIS II
     Dosage: UNK, UNKNOWN
     Route: 041

REACTIONS (6)
  - Mucopolysaccharidosis II [Recovered/Resolved]
  - Condition aggravated [Recovered/Resolved]
  - Convulsion [Recovered/Resolved]
  - Nervousness [Unknown]
  - Agitation [Unknown]
  - Insomnia [Unknown]
